FAERS Safety Report 16302839 (Version 1)
Quarter: 2019Q2

REPORT INFORMATION
  Report Type: Report from Study
  Country: US (occurrence: US)
  Receive Date: 20190513
  Receipt Date: 20190513
  Transmission Date: 20190711
  Serious: Yes (Other)
  Sender: FDA-Public Use
  Company Number: US-GILEAD-2019-0404059

PATIENT
  Age: 52 Year
  Sex: Female

DRUGS (3)
  1. WARFARIN [Concomitant]
     Active Substance: WARFARIN
  2. VELETRI [Suspect]
     Active Substance: EPOPROSTENOL
     Indication: PRODUCT USED FOR UNKNOWN INDICATION
     Route: 065
  3. AMBRISENTAN [Suspect]
     Active Substance: AMBRISENTAN
     Indication: PRODUCT USED FOR UNKNOWN INDICATION
     Dosage: 10 MG, QD
     Route: 048
     Dates: start: 20090223

REACTIONS (13)
  - Dyspnoea exertional [Not Recovered/Not Resolved]
  - Hot flush [Unknown]
  - Flushing [Unknown]
  - Dyspnoea at rest [Not Recovered/Not Resolved]
  - Bone pain [Unknown]
  - Palpitations [Unknown]
  - Seasonal allergy [Not Recovered/Not Resolved]
  - Fatigue [Unknown]
  - Headache [Unknown]
  - Pruritus [Unknown]
  - Dizziness [Unknown]
  - Oxygen saturation decreased [Unknown]
  - Pain in extremity [Unknown]
